FAERS Safety Report 14160046 (Version 1)
Quarter: 2017Q4

REPORT INFORMATION
  Report Type: Report from Study
  Country: SE (occurrence: SE)
  Receive Date: 20171106
  Receipt Date: 20171106
  Transmission Date: 20180321
  Serious: Yes (Death, Other)
  Sender: FDA-Public Use
  Company Number: SE-ROCHE-2017533

PATIENT

DRUGS (1)
  1. RITUXIMAB. [Suspect]
     Active Substance: RITUXIMAB
     Indication: MYOPATHY
     Route: 042

REACTIONS (3)
  - Death [Fatal]
  - Infusion related reaction [Unknown]
  - Infection [Unknown]
